FAERS Safety Report 10151448 (Version 2)
Quarter: 2014Q2

REPORT INFORMATION
  Report Type: Spontaneous
  Country: IN (occurrence: IN)
  Receive Date: 20140502
  Receipt Date: 20140502
  Transmission Date: 20141212
  Serious: Yes (Death, Hospitalization)
  Sender: FDA-Public Use
  Company Number: IN-CUBIST PHARMACEUTICALS, INC.-2014CBST000470

PATIENT
  Sex: 0

DRUGS (6)
  1. CUBICIN [Suspect]
     Indication: JOINT EFFUSION
     Dosage: UNK UNK, BID
     Route: 042
  2. CUBICIN [Suspect]
     Indication: OFF LABEL USE
  3. COLISTIN [Concomitant]
     Indication: JOINT EFFUSION
     Dosage: UNK UNK, UNK
     Route: 065
  4. MEROPENEM [Concomitant]
     Indication: JOINT EFFUSION
     Dosage: UNK UNK, UNK
     Route: 065
  5. PIPERACILLIN/TAZOBACTAM [Concomitant]
     Indication: JOINT EFFUSION
     Dosage: UNK UNK, UNK
     Route: 065
  6. VANCOMYCIN [Concomitant]
     Indication: JOINT EFFUSION
     Dosage: UNK UNK, UNK
     Route: 065

REACTIONS (2)
  - Cardio-respiratory arrest [Fatal]
  - Sepsis [Fatal]
